FAERS Safety Report 4818123-1 (Version None)
Quarter: 2005Q4

REPORT INFORMATION
  Report Type: 
  Country: None (occurrence: None)
  Receive Date: 20051102
  Receipt Date: 20050705
  Transmission Date: 20060501
  Serious: Yes (Hospitalization)
  Sender: FDA-Public Use
  Company Number: US-MERCK-0507USA00612

PATIENT
  Age: 48 Year
  Sex: Male
  Weight: 73 kg

DRUGS (12)
  1. VIOXX [Suspect]
     Indication: ARTHRITIS
     Route: 048
     Dates: start: 19991005
  2. VIOXX [Suspect]
     Route: 048
     Dates: end: 20040604
  3. VIOXX [Suspect]
     Indication: OSTEOARTHRITIS
     Route: 048
     Dates: start: 19991005
  4. VIOXX [Suspect]
     Route: 048
     Dates: end: 20040604
  5. TYLENOL W/ CODEINE NO. 3 [Concomitant]
     Route: 065
     Dates: start: 20040406
  6. ULTRACET [Concomitant]
     Route: 065
     Dates: start: 20021003
  7. CELEBREX [Concomitant]
     Route: 065
     Dates: start: 20030724
  8. ULTRAM [Concomitant]
     Route: 065
  9. DARVOCET-N 100 [Concomitant]
     Route: 065
     Dates: start: 20000220
  10. ROBAXIN [Concomitant]
     Route: 065
     Dates: start: 19991005
  11. TYLOX [Concomitant]
     Route: 065
     Dates: start: 19991221
  12. BACTRIM [Concomitant]
     Route: 065
     Dates: start: 20000411

REACTIONS (10)
  - ACUTE MYOCARDIAL INFARCTION [None]
  - ANGINA PECTORIS [None]
  - BENIGN PROSTATIC HYPERPLASIA [None]
  - CHRONIC OBSTRUCTIVE PULMONARY DISEASE [None]
  - HYPERLIPIDAEMIA [None]
  - HYPERTENSION [None]
  - PAIN [None]
  - PROSTATIC DISORDER [None]
  - PROSTATITIS [None]
  - URETHRAL STENOSIS [None]
